FAERS Safety Report 8530097-9 (Version None)
Quarter: 2012Q3

REPORT INFORMATION
  Report Type: 
  Country: None (occurrence: None)
  Receive Date: 20120723
  Receipt Date: 20120719
  Transmission Date: 20120928
  Serious: Yes (Other)
  Sender: FDA-Public Use
  Company Number: PHHY2012DE062428

PATIENT
  Age: 80 Year
  Sex: Female

DRUGS (3)
  1. FASLODEX [Concomitant]
     Indication: BREAST CANCER METASTATIC
     Dosage: 250 MG
     Route: 030
     Dates: start: 20070101
  2. ANASTROZOLE [Concomitant]
  3. ZOMETA [Suspect]
     Indication: METASTASES TO BONE
     Dosage: 4 MG, UNK
     Route: 042
     Dates: start: 20070101

REACTIONS (1)
  - OSTEONECROSIS OF JAW [None]
